FAERS Safety Report 18659840 (Version 1)
Quarter: 2020Q4

REPORT INFORMATION
  Report Type: Spontaneous
  Country: FR (occurrence: FR)
  Receive Date: 20201224
  Receipt Date: 20201224
  Transmission Date: 20210114
  Serious: Yes (Hospitalization, Other)
  Sender: FDA-Public Use
  Company Number: FR-ACCORD-211537

PATIENT
  Age: 23 Month
  Sex: Male
  Weight: 12.9 kg

DRUGS (2)
  1. APIXABAN [Suspect]
     Active Substance: APIXABAN
     Dosage: STRENGTH: 5 MG, INGESTED 8 PILLS
  2. DIGOXIN. [Suspect]
     Active Substance: DIGOXIN
     Dosage: STRENGTH: 0.25 MG, INGESTED 3 PILLS

REACTIONS (3)
  - Toxicity to various agents [Unknown]
  - Accidental overdose [Unknown]
  - Accidental exposure to product [Unknown]
